FAERS Safety Report 8927836 (Version 4)
Quarter: 2013Q4

REPORT INFORMATION
  Report Type: Report from Study
  Country: JP (occurrence: JP)
  Receive Date: 20121127
  Receipt Date: 20131219
  Transmission Date: 20140711
  Serious: Yes (Hospitalization, Other)
  Sender: FDA-Public Use
  Company Number: JP-VERTEX PHARMACEUTICAL INC.-AE-2012-003622

PATIENT
  Age: 67 Year
  Sex: Female

DRUGS (21)
  1. VX-950 (TELAPREVIR) [Suspect]
     Indication: CHRONIC HEPATITIS C
     Dosage: 2250 MG, QD
     Route: 048
     Dates: start: 20120124, end: 20120130
  2. VX-950 (TELAPREVIR) [Suspect]
     Dosage: 1500 MG, QD
     Route: 048
     Dates: start: 20120131, end: 20120220
  3. VX-950 (TELAPREVIR) [Suspect]
     Dosage: 1000 MG, QD
     Route: 048
     Dates: start: 20120221, end: 20120301
  4. VX-950 (TELAPREVIR) [Suspect]
     Dosage: 1250 MG, QD
     Route: 048
     Dates: start: 20120326, end: 20120404
  5. VX-950 (TELAPREVIR) [Suspect]
     Dosage: 250MG/DAY AND 500MG/DAY ON ALTERNATE DAYS
     Route: 048
     Dates: start: 20120405, end: 20120501
  6. RIBAVIRIN [Suspect]
     Indication: CHRONIC HEPATITIS C
     Dosage: 600 MG, QD
     Route: 048
     Dates: start: 20120124, end: 20120207
  7. RIBAVIRIN [Suspect]
     Dosage: 400 MG, QD
     Route: 048
     Dates: start: 20120208, end: 20120220
  8. RIBAVIRIN [Suspect]
     Dosage: 200 MG, QD
     Route: 048
     Dates: start: 20120221, end: 20120301
  9. RIBAVIRIN [Suspect]
     Dosage: 200 MG, QD
     Route: 048
     Dates: start: 20120326, end: 20120404
  10. RIBAVIRIN [Suspect]
     Dosage: 200 MG/DAY AND 400 MG/DAY ON ALTERNATE DAYS
     Route: 048
     Dates: start: 20120405, end: 20120419
  11. RIBAVIRIN [Suspect]
     Dosage: 400 MG, QD
     Route: 048
     Dates: start: 20120420, end: 20120614
  12. RIBAVIRIN [Suspect]
     Dosage: 600 MG, QD
     Route: 048
     Dates: start: 20120615
  13. PEGINTERFERON ALFA-2B [Suspect]
     Indication: CHRONIC HEPATITIS C
     Dosage: 1.5 ?G/KG, QW
     Route: 058
     Dates: start: 20120124, end: 20120224
  14. PEGINTERFERON ALFA-2B [Suspect]
     Dosage: 1.1 ?G/KG, QW
     Route: 058
     Dates: start: 20120326, end: 20120621
  15. PEGINTERFERON ALFA-2B [Suspect]
     Dosage: 1.4 ?G/KG, WEEK
     Route: 058
     Dates: start: 20120622
  16. VOLTAREN [Concomitant]
     Dosage: 25 MG, QD, PRN
     Route: 054
     Dates: start: 20120124
  17. TOUGHMAC E [Concomitant]
     Dosage: 3 DF, QD
     Route: 048
  18. ALLEGRA [Concomitant]
     Dosage: 120 MG, QD
     Route: 048
  19. NAUZELIN [Concomitant]
     Dosage: 3 DF, QD
     Route: 048
     Dates: start: 20120223, end: 20120327
  20. NAUZELIN [Concomitant]
     Dosage: 3 DF, QD
     Route: 048
  21. MAGMITT [Concomitant]
     Dosage: 1980 MG, QD
     Route: 048
     Dates: start: 20120125

REACTIONS (2)
  - Decreased appetite [Recovered/Resolved]
  - Anaemia [Recovered/Resolved]
